FAERS Safety Report 16135127 (Version 1)
Quarter: 2019Q1

REPORT INFORMATION
  Report Type: Spontaneous
  Country: US (occurrence: US)
  Receive Date: 20190329
  Receipt Date: 20190329
  Transmission Date: 20190418
  Serious: Yes (Other)
  Sender: FDA-Public Use
  Company Number: PHHY2019US070690

PATIENT
  Age: 66 Year
  Sex: Male

DRUGS (5)
  1. PEPCID [Concomitant]
     Active Substance: FAMOTIDINE
     Indication: PRODUCT USED FOR UNKNOWN INDICATION
     Dosage: 1 DF, QD
     Route: 065
  2. OXALIPLATIN. [Suspect]
     Active Substance: OXALIPLATIN
     Indication: PRODUCT USED FOR UNKNOWN INDICATION
     Dosage: UNK
     Route: 065
     Dates: start: 201805
  3. 5 FU [Suspect]
     Active Substance: FLUOROURACIL
     Indication: PRODUCT USED FOR UNKNOWN INDICATION
     Dosage: UNK
     Route: 065
     Dates: start: 201805
  4. ACYCLOVIR. [Concomitant]
     Active Substance: ACYCLOVIR
     Indication: PRODUCT USED FOR UNKNOWN INDICATION
     Dosage: UNK UNK, PRN
     Route: 065
  5. 5 FU [Suspect]
     Active Substance: FLUOROURACIL
     Dosage: UNK, QOD
     Route: 065
     Dates: start: 20190123

REACTIONS (9)
  - Metastases to lung [Unknown]
  - Oesophageal adenocarcinoma stage IV [Unknown]
  - Metastases to skin [Unknown]
  - Barrett^s oesophagus [Unknown]
  - Hypertension [Unknown]
  - Type 2 diabetes mellitus [Unknown]
  - Herpes simplex [Unknown]
  - Gastrooesophageal reflux disease [Unknown]
  - Alcohol use disorder [Unknown]

NARRATIVE: CASE EVENT DATE: 201805
